FAERS Safety Report 12587298 (Version 1)
Quarter: 2016Q3

REPORT INFORMATION
  Report Type: Report from Study
  Country: US (occurrence: US)
  Receive Date: 20160725
  Receipt Date: 20160725
  Transmission Date: 20161109
  Serious: Yes (Other)
  Sender: FDA-Public Use
  Company Number: US-GILEAD-2016-0210419

PATIENT
  Age: 73 Year
  Sex: Female

DRUGS (1)
  1. AMBRISENTAN [Suspect]
     Active Substance: AMBRISENTAN
     Indication: PRODUCT USED FOR UNKNOWN INDICATION
     Dosage: 10 MG, QD
     Route: 065

REACTIONS (8)
  - Pulmonary fibrosis [Unknown]
  - Dyspnoea [Unknown]
  - Pulmonary hypertension [Not Recovered/Not Resolved]
  - Hypersensitivity [Unknown]
  - Chronic obstructive pulmonary disease [Not Recovered/Not Resolved]
  - Nausea [Unknown]
  - Pneumonia [Unknown]
  - Unevaluable event [Unknown]
